FAERS Safety Report 18161997 (Version 1)
Quarter: 2020Q3

REPORT INFORMATION
  Report Type: Spontaneous
  Country: US (occurrence: US)
  Receive Date: 20200817
  Receipt Date: 20200817
  Transmission Date: 20201103
  Serious: Yes (Other)
  Sender: FDA-Public Use
  Company Number: None

PATIENT
  Age: 62 Year
  Sex: Female
  Weight: 58.97 kg

DRUGS (3)
  1. PROLIA [Suspect]
     Active Substance: DENOSUMAB
     Indication: OSTEOPOROSIS
     Dosage: FREQUENCY: Q 6 MESES
     Route: 058
     Dates: start: 20191114, end: 20200715
  2. PROLIA SUBCUT SOLUTION 60MG [Concomitant]
     Dates: start: 20191114, end: 20200416
  3. PROLIA SUBCUT SOLUTION 60MG [Concomitant]

REACTIONS (1)
  - Breast cancer [None]

NARRATIVE: CASE EVENT DATE: 20200806
